FAERS Safety Report 9530257 (Version 2)
Quarter: 2013Q4

REPORT INFORMATION
  Report Type: Report from Study
  Country: BR (occurrence: BR)
  Receive Date: 20130917
  Receipt Date: 20131018
  Transmission Date: 20140711
  Serious: Yes (Other)
  Sender: FDA-Public Use
  Company Number: PHHY2013BR103249

PATIENT
  Sex: Male

DRUGS (5)
  1. CATAFLAM EMULGEL [Suspect]
     Indication: ARTHRALGIA
     Dosage: 1 UKN (APPLICATION), AT MORNING AND AT NIGHT
     Route: 061
     Dates: start: 1996
  2. CATAFLAM EMULGEL [Suspect]
     Indication: RHEUMATIC DISORDER
  3. DIOVAN [Suspect]
     Indication: BLOOD PRESSURE
     Dosage: 3 DF (OR 1 TABLET AT THE MORNING AND AT NIGHT DEPENDED ON BLOOD PRESSURE VALUE), DAILY
  4. SELOZOK [Concomitant]
     Indication: BLOOD PRESSURE
     Dosage: 1 DF (AT MORNING), UNK
     Route: 048
  5. FRONTAL [Concomitant]
     Indication: SEDATION
     Dosage: 2 DF (BEFORE SLEEPING), UKN
     Route: 048

REACTIONS (4)
  - Arthropathy [Recovering/Resolving]
  - Arthralgia [Recovering/Resolving]
  - Fall [Recovering/Resolving]
  - Joint swelling [Recovering/Resolving]
